FAERS Safety Report 9821865 (Version 2)
Quarter: 2014Q1

REPORT INFORMATION
  Report Type: Report from Study
  Country: KR (occurrence: KR)
  Receive Date: 20140116
  Receipt Date: 20140116
  Transmission Date: 20141002
  Serious: Yes (Other)
  Sender: FDA-Public Use
  Company Number: PHHY2012KR113828

PATIENT
  Age: 56 Year
  Sex: Female

DRUGS (6)
  1. AMN107 [Suspect]
     Indication: CHRONIC MYELOID LEUKAEMIA
     Dosage: 800 MG, PER DAY
     Dates: start: 20120425, end: 20120830
  2. AMN107 [Suspect]
     Dosage: 400 MG, PER DAY
     Dates: start: 20121011
  3. ALBIS [Concomitant]
     Indication: URTICARIA
     Dosage: UNK
     Dates: start: 20120816, end: 20120917
  4. PHENIRAMIN [Concomitant]
     Indication: URTICARIA
     Dosage: UNK
     Dates: start: 20120710, end: 20121001
  5. RABICRA [Concomitant]
     Dosage: UNK
     Dates: start: 20120920, end: 20120927
  6. COLCHICINE [Concomitant]
     Dosage: 0.6 MG, UNK
     Route: 048
     Dates: start: 20120920, end: 20120927

REACTIONS (2)
  - Cellulitis orbital [Recovered/Resolved]
  - Neutropenia [Recovered/Resolved]
